FAERS Safety Report 23182252 (Version 1)
Quarter: 2023Q4

REPORT INFORMATION
  Report Type: Spontaneous
  Country: US (occurrence: US)
  Receive Date: 20231114
  Receipt Date: 20231114
  Transmission Date: 20240110
  Serious: Yes (Hospitalization)
  Sender: FDA-Public Use
  Company Number: US-INTRA-CELLULAR THERAPIES, INC.-2023ICT01560

PATIENT
  Sex: Female

DRUGS (8)
  1. CAPLYTA [Suspect]
     Active Substance: LUMATEPERONE
     Indication: Bipolar disorder
     Dosage: UNK
     Dates: start: 202307, end: 2023
  2. CAPLYTA [Suspect]
     Active Substance: LUMATEPERONE
     Indication: Schizoaffective disorder
  3. CAPLYTA [Suspect]
     Active Substance: LUMATEPERONE
     Indication: Schizophrenia
  4. CAPLYTA [Suspect]
     Active Substance: LUMATEPERONE
     Indication: Psychotic disorder
  5. LAMICTAL [Concomitant]
     Active Substance: LAMOTRIGINE
     Dosage: 200 MG, 2X/DAY
  6. BUSPAR [Concomitant]
     Active Substance: BUSPIRONE HYDROCHLORIDE
     Dosage: 60 MG, 3X/DAY
  7. COGENTIN [Concomitant]
     Active Substance: BENZTROPINE MESYLATE
     Dosage: 1 MG, 2X/DAY
  8. IRON [Concomitant]
     Active Substance: IRON

REACTIONS (9)
  - Altered state of consciousness [Unknown]
  - Balance disorder [Unknown]
  - Feeling abnormal [Unknown]
  - Delusion [Unknown]
  - Logorrhoea [Unknown]
  - Aphasia [Unknown]
  - Speech disorder [Unknown]
  - Hypokinesia [Unknown]
  - Dizziness [Unknown]

NARRATIVE: CASE EVENT DATE: 20230101
